FAERS Safety Report 24673245 (Version 1)
Quarter: 2024Q4

REPORT INFORMATION
  Report Type: Spontaneous
  Country: US (occurrence: US)
  Receive Date: 20241128
  Receipt Date: 20241128
  Transmission Date: 20250114
  Serious: No
  Sender: IBSA INSTITUT BIOCHIMIQUE
  Company Number: US-IBSA PHARMA INC.-2024IBS000019

PATIENT

DRUGS (2)
  1. TIROSINT [Suspect]
     Active Substance: LEVOTHYROXINE SODIUM
     Indication: Thyroid disorder
     Dosage: 88 MICROGRAM
     Route: 048
  2. TIROSINT [Suspect]
     Active Substance: LEVOTHYROXINE SODIUM
     Dosage: 75 MICROGRAM, QD
     Route: 048
     Dates: start: 202401

REACTIONS (10)
  - Restless legs syndrome [Recovered/Resolved]
  - Sensory disturbance [Recovered/Resolved]
  - Vein rupture [Recovered/Resolved]
  - Energy increased [Unknown]
  - Low density lipoprotein increased [Unknown]
  - Memory impairment [Unknown]
  - Weight increased [Unknown]
  - Palpitations [Unknown]
  - Nervousness [Unknown]
  - Anxiety [Unknown]

NARRATIVE: CASE EVENT DATE: 20240201
